FAERS Safety Report 13349390 (Version 3)
Quarter: 2018Q3

REPORT INFORMATION
  Report Type: Spontaneous
  Country: IT (occurrence: IT)
  Receive Date: 20170320
  Receipt Date: 20180706
  Transmission Date: 20181010
  Serious: Yes (Other)
  Sender: FDA-Public Use
  Company Number: IT-ROCHE-1908333

PATIENT
  Age: 48 Year
  Sex: Female
  Weight: 84 kg

DRUGS (2)
  1. PERJETA [Concomitant]
     Active Substance: PERTUZUMAB
     Indication: BREAST CANCER
     Dosage: 420 MG 30 MG/ML ? 1 VIAL?CONCENTRATE FOR SOLUTION FOR INFUSION
     Route: 042
     Dates: start: 20170308, end: 20170308
  2. HERCEPTIN [Suspect]
     Active Substance: TRASTUZUMAB
     Indication: BREAST CANCER
     Dosage: 150 MG 1 VIAL FOR INTRAVENOUS USE?POWDER FOR CONCENTRATE FOR SOLUTION FOR INTRAVENOUS INFUSION
     Route: 042
     Dates: start: 20170308

REACTIONS (4)
  - Erythema [Recovered/Resolved]
  - Arthralgia [Recovered/Resolved]
  - Chills [Recovered/Resolved]
  - Feeling hot [Recovered/Resolved]

NARRATIVE: CASE EVENT DATE: 20170308
